FAERS Safety Report 21297809 (Version 2)
Quarter: 2022Q4

REPORT INFORMATION
  Report Type: Spontaneous
  Country: US (occurrence: US)
  Receive Date: 20220906
  Receipt Date: 20221010
  Transmission Date: 20230113
  Serious: No
  Sender: FDA-Public Use
  Company Number: US-PFIZER INC-202201123075

PATIENT
  Age: 64 Year
  Sex: Male
  Weight: 102.04 kg

DRUGS (3)
  1. PAXLOVID [Suspect]
     Active Substance: NIRMATRELVIR\RITONAVIR
     Indication: COVID-19 treatment
     Dosage: UNK
     Dates: start: 20220817, end: 20220822
  2. ZOCOR [Suspect]
     Active Substance: SIMVASTATIN
     Indication: Blood cholesterol increased
     Dosage: UNK
     Dates: start: 20220601, end: 20220905
  3. ZOCOR [Suspect]
     Active Substance: SIMVASTATIN
     Dosage: 20 MG, 1X/DAY

REACTIONS (3)
  - Pyrexia [Recovered/Resolved]
  - Oropharyngeal pain [Recovered/Resolved]
  - Contraindicated product administered [Unknown]

NARRATIVE: CASE EVENT DATE: 20220824
